FAERS Safety Report 6460626-0 (Version None)
Quarter: 2009Q4

REPORT INFORMATION
  Report Type: 
  Country: None (occurrence: None)
  Receive Date: 20091130
  Receipt Date: 20091123
  Transmission Date: 20100525
  Serious: Yes (Disabling)
  Sender: FDA-Public Use
  Company Number: FR-KINGPHARMUSA00001-K200901464

PATIENT
  Age: 83 Year
  Sex: Male

DRUGS (7)
  1. ALTACE [Suspect]
     Indication: HYPERTENSION
     Dosage: 10 MG, QD
     Route: 048
     Dates: start: 20090801, end: 20091101
  2. ALTACE [Suspect]
     Indication: CEREBROVASCULAR ACCIDENT PROPHYLAXIS
  3. SIMVASTATIN [Concomitant]
     Dosage: UNK
     Dates: start: 20090701
  4. ASPIRIN [Concomitant]
     Dosage: UNK
     Dates: start: 20090701
  5. MIRTAZAPINE [Concomitant]
     Dosage: UNK
     Dates: start: 20090701
  6. ZOLADEX [Concomitant]
     Dosage: UNK
     Dates: start: 20090901
  7. ISRADIPINE [Concomitant]
     Dosage: UNK
     Dates: start: 19890101

REACTIONS (3)
  - DYSPNOEA [None]
  - PULMONARY THROMBOSIS [None]
  - WHITE BLOOD CELL COUNT INCREASED [None]
